FAERS Safety Report 15781820 (Version 2)
Quarter: 2019Q2

REPORT INFORMATION
  Report Type: Spontaneous
  Country: FR (occurrence: FR)
  Receive Date: 20190102
  Receipt Date: 20190401
  Transmission Date: 20190711
  Serious: Yes (Other)
  Sender: FDA-Public Use
  Company Number: FR-MYLANLABS-2018M1096562

PATIENT
  Age: 67 Year
  Sex: Female

DRUGS (7)
  1. VALACICLOVIR [Suspect]
     Active Substance: VALACYCLOVIR HYDROCHLORIDE
     Indication: POEMS SYNDROME
     Route: 065
     Dates: start: 201703
  2. ESOMEPRAZOLE. [Concomitant]
     Active Substance: ESOMEPRAZOLE MAGNESIUM
     Indication: POEMS SYNDROME
     Route: 065
     Dates: start: 201703
  3. DARATUMUMAB [Concomitant]
     Active Substance: DARATUMUMAB
     Indication: POEMS SYNDROME
     Route: 050
  4. PREGABALIN. [Concomitant]
     Active Substance: PREGABALIN
     Indication: POEMS SYNDROME
     Route: 065
  5. COTRIMOXAZOLE [Concomitant]
     Active Substance: SULFAMETHOXAZOLE\TRIMETHOPRIM
     Indication: POEMS SYNDROME
     Route: 065
     Dates: start: 201703
  6. AMITRIPTYLINE [Concomitant]
     Active Substance: AMITRIPTYLINE
     Indication: POEMS SYNDROME
     Route: 065
     Dates: start: 201703
  7. LENALIDOMIDE [Concomitant]
     Active Substance: LENALIDOMIDE
     Indication: POEMS SYNDROME
     Route: 065
     Dates: start: 201703

REACTIONS (1)
  - Drug reaction with eosinophilia and systemic symptoms [Unknown]

NARRATIVE: CASE EVENT DATE: 201704
